FAERS Safety Report 6688996-9 (Version None)
Quarter: 2010Q2

REPORT INFORMATION
  Report Type: 
  Country: None (occurrence: None)
  Receive Date: 20100420
  Receipt Date: 20100408
  Transmission Date: 20101027
  Serious: Yes (Other)
  Sender: FDA-Public Use
  Company Number: PHHY2010US22035

PATIENT
  Age: 48 Year
  Sex: Female

DRUGS (1)
  1. RECLAST [Suspect]

REACTIONS (4)
  - FEBRILE CONVULSION [None]
  - HEADACHE [None]
  - HYPOKINESIA [None]
  - INFLUENZA LIKE ILLNESS [None]
